FAERS Safety Report 11484265 (Version 1)
Quarter: 2015Q3

REPORT INFORMATION
  Report Type: Spontaneous
  Country: US (occurrence: US)
  Receive Date: 20150903
  Receipt Date: 20150903
  Transmission Date: 20151125
  Serious: No
  Sender: FDA-Public Use
  Company Number: US-ELI_LILLY_AND_COMPANY-US201109003895

PATIENT
  Sex: Female

DRUGS (2)
  1. CYMBALTA [Suspect]
     Active Substance: DULOXETINE HYDROCHLORIDE
     Indication: BACK PAIN
     Dosage: UNK, UNKNOWN
  2. CONTRACEPTIVES [Concomitant]
     Active Substance: UNSPECIFIED INGREDIENT

REACTIONS (3)
  - Off label use [Unknown]
  - Irritable bowel syndrome [Unknown]
  - Exposure during pregnancy [Not Recovered/Not Resolved]
